FAERS Safety Report 10598411 (Version 2)
Quarter: 2014Q4

REPORT INFORMATION
  Report Type: Report from Study
  Country: CA (occurrence: CA)
  Receive Date: 20141121
  Receipt Date: 20141229
  Transmission Date: 20150529
  Serious: Yes (Hospitalization, Other)
  Sender: FDA-Public Use
  Company Number: CA-ABBVIE-14K-028-1309395-00

PATIENT
  Sex: Male
  Weight: 81.72 kg

DRUGS (3)
  1. SYNTHROID [Concomitant]
     Active Substance: LEVOTHYROXINE SODIUM
     Indication: HYPOTHYROIDISM
     Route: 048
  2. HUMIRA [Suspect]
     Active Substance: ADALIMUMAB
     Indication: PSORIASIS
     Route: 058
     Dates: end: 2013
  3. HUMIRA [Suspect]
     Active Substance: ADALIMUMAB
     Route: 058
     Dates: start: 2013, end: 20140829

REACTIONS (8)
  - Intervertebral disc compression [Recovered/Resolved]
  - Blood cholesterol increased [Not Recovered/Not Resolved]
  - Hepatic infection bacterial [Recovered/Resolved]
  - Renal failure [Recovered/Resolved]
  - Immunodeficiency [Unknown]
  - Spinal fracture [Recovered/Resolved]
  - Adverse drug reaction [Unknown]
  - Cardiac failure [Recovered/Resolved]

NARRATIVE: CASE EVENT DATE: 2012
